FAERS Safety Report 9631057 (Version 2)
Quarter: 2013Q4

REPORT INFORMATION
  Report Type: Spontaneous
  Country: US (occurrence: US)
  Receive Date: 20131018
  Receipt Date: 20131028
  Transmission Date: 20140711
  Serious: Yes (Life-Threatening, Hospitalization, Other)
  Sender: FDA-Public Use
  Company Number: US-PFIZER INC-2013295554

PATIENT
  Age: 16 Month
  Sex: Female

DRUGS (1)
  1. IBUPROFEN [Suspect]
     Dosage: UNK
     Route: 048

REACTIONS (9)
  - Accidental exposure to product by child [Recovered/Resolved]
  - Overdose [Recovered/Resolved]
  - Pneumonia aspiration [Recovered/Resolved]
  - Pneumonia streptococcal [Recovered/Resolved]
  - Streptococcal bacteraemia [Recovered/Resolved]
  - Urinary tract infection [Recovered/Resolved]
  - Mental status changes [Recovered/Resolved]
  - Metabolic acidosis [Recovered/Resolved]
  - Gastritis [Recovered/Resolved]
